FAERS Safety Report 14725591 (Version 1)
Quarter: 2018Q2

REPORT INFORMATION
  Report Type: Spontaneous
  Country: US (occurrence: US)
  Receive Date: 20180406
  Receipt Date: 20180406
  Transmission Date: 20180711
  Serious: No
  Sender: FDA-Public Use
  Company Number: US-BAUSCH-BL-2017-024266

PATIENT
  Age: 74 Year
  Sex: Female

DRUGS (3)
  1. POLYMYXIN B SULFATE AND TRIMETHOPRIM [Suspect]
     Active Substance: POLYMYXIN B SULFATE\TRIMETHOPRIM SULFATE
     Indication: POSTOPERATIVE CARE
     Dosage: ONE HOUR PRIOR TO INSTILLING THE SOOTHE EYE DROPS; LEFT EYE
     Route: 047
     Dates: start: 20170809
  2. PREDNISOLONE. [Suspect]
     Active Substance: PREDNISOLONE
     Indication: POSTOPERATIVE CARE
     Dosage: ONE HOUR PRIOR TO INSTILLING THE SOOTHE EYE DROPS; LEFT EYE
     Route: 047
     Dates: start: 20170809
  3. SOOTHE LONG LASTING (PRESERVATIVE FREE) [Suspect]
     Active Substance: GLYCERIN\PROPYLENE GLYCOL
     Indication: PRODUCT USED FOR UNKNOWN INDICATION
     Route: 047
     Dates: start: 20170809

REACTIONS (2)
  - Product colour issue [Not Recovered/Not Resolved]
  - Product deposit [Not Recovered/Not Resolved]

NARRATIVE: CASE EVENT DATE: 20170809
